FAERS Safety Report 7210862-0 (Version None)
Quarter: 2010Q4

REPORT INFORMATION
  Report Type: 
  Country: None (occurrence: None)
  Receive Date: 20101223
  Receipt Date: 20101213
  Transmission Date: 20110411
  Serious: Yes (Death)
  Sender: FDA-Public Use
  Company Number: 08-189

PATIENT
  Age: 32 Year
  Sex: Male

DRUGS (6)
  1. CLOZARIL [Suspect]
     Indication: DEVELOPMENTAL DELAY
     Dosage: 100 MG BID PO
     Route: 048
     Dates: start: 20070521, end: 20080101
  2. CLOZARIL [Suspect]
     Indication: DISABILITY
     Dosage: 100 MG BID PO
     Route: 048
     Dates: start: 20070521, end: 20080101
  3. CLOZARIL [Suspect]
     Indication: INTERMITTENT EXPLOSIVE DISORDER
     Dosage: 100 MG BID PO
     Route: 048
     Dates: start: 20070521, end: 20080101
  4. GEODON [Concomitant]
  5. LEXAPRO [Concomitant]
  6. TOFRANIL [Concomitant]

REACTIONS (1)
  - ACCIDENTAL POISONING [None]
